FAERS Safety Report 6966824-1 (Version None)
Quarter: 2010Q3

REPORT INFORMATION
  Report Type: 
  Country: None (occurrence: None)
  Receive Date: 20100906
  Receipt Date: 20100824
  Transmission Date: 20110219
  Serious: Yes (Death)
  Sender: FDA-Public Use
  Company Number: US-GENZYME-CLOF-1001164

PATIENT

DRUGS (4)
  1. CLOLAR [Suspect]
     Indication: ACUTE LEUKAEMIA
     Dosage: UNK UNK, QDX5
     Route: 042
  2. THIOTEPA [Suspect]
     Indication: ACUTE LEUKAEMIA
     Dosage: 10 MG/KG, QDX1
     Route: 065
  3. MELPHALAN [Suspect]
     Indication: ACUTE LEUKAEMIA
     Dosage: 70 MG/M2, QDX2
     Route: 065
  4. TACROLIMUS [Concomitant]
     Indication: PROPHYLAXIS AGAINST GRAFT VERSUS HOST DISEASE
     Dosage: UNK UNK, UNK
     Route: 065

REACTIONS (1)
  - NEOPLASM MALIGNANT [None]
